FAERS Safety Report 17767833 (Version 1)
Quarter: 2020Q2

REPORT INFORMATION
  Report Type: Spontaneous
  Country: CA (occurrence: CA)
  Receive Date: 20200511
  Receipt Date: 20200511
  Transmission Date: 20200714
  Serious: Yes (Death)
  Sender: FDA-Public Use
  Company Number: CA-NAPPMUNDI-CAN-2020-0011027

PATIENT
  Age: 70 Year
  Sex: Male

DRUGS (21)
  1. COLACE [Concomitant]
     Active Substance: DOCUSATE SODIUM
  2. DILAUDID [Suspect]
     Active Substance: HYDROMORPHONE HYDROCHLORIDE
     Indication: PRODUCT USED FOR UNKNOWN INDICATION
     Dosage: UNK
     Route: 065
  3. FLUVOXAMINE [Suspect]
     Active Substance: FLUVOXAMINE
     Indication: PRODUCT USED FOR UNKNOWN INDICATION
     Dosage: UNK
     Route: 065
  4. ACETAMINOPHEN. [Concomitant]
     Active Substance: ACETAMINOPHEN
  5. LOSEC [Concomitant]
     Active Substance: OMEPRAZOLE
  6. SYNTHROID [Concomitant]
     Active Substance: LEVOTHYROXINE SODIUM
  7. FENTANYL. [Suspect]
     Active Substance: FENTANYL
     Indication: PRODUCT USED FOR UNKNOWN INDICATION
     Dosage: UNK
     Route: 065
  8. APO-CAL [Concomitant]
     Active Substance: CALCIUM CARBONATE
  9. GRAVOL [Concomitant]
     Active Substance: DIMENHYDRINATE
  10. SENOKOT [Concomitant]
     Active Substance: SENNOSIDES
  11. VIOXX [Concomitant]
     Active Substance: ROFECOXIB
  12. CLONAZEPAM. [Suspect]
     Active Substance: CLONAZEPAM
     Indication: PRODUCT USED FOR UNKNOWN INDICATION
     Dosage: 1 MG, DAILY
     Route: 065
  13. ACETAMINOPHEN AND CODEINE [Concomitant]
     Active Substance: ACETAMINOPHEN\CODEINE PHOSPHATE
  14. ASA [Concomitant]
     Active Substance: ASPIRIN
  15. CORDARONE [Concomitant]
     Active Substance: AMIODARONE HYDROCHLORIDE
  16. LIPITOR [Concomitant]
     Active Substance: ATORVASTATIN CALCIUM
  17. FLURAZEPAM HYDROCHLORIDE. [Suspect]
     Active Substance: FLURAZEPAM HYDROCHLORIDE
     Indication: PRODUCT USED FOR UNKNOWN INDICATION
     Dosage: 30 MG, DAILY
     Route: 048
  18. MOTILIUM [Concomitant]
     Active Substance: DOMPERIDONE
  19. OXAZEPAM. [Concomitant]
     Active Substance: OXAZEPAM
  20. CODEINE [Suspect]
     Active Substance: CODEINE
     Indication: PRODUCT USED FOR UNKNOWN INDICATION
     Dosage: UNK
     Route: 065
  21. NITRO-DUR [Concomitant]
     Active Substance: NITROGLYCERIN

REACTIONS (7)
  - Disorientation [Fatal]
  - Ecchymosis [Fatal]
  - Pathological fracture [Fatal]
  - Respiratory failure [Fatal]
  - Rib fracture [Fatal]
  - Fatigue [Fatal]
  - Confusional state [Fatal]
